FAERS Safety Report 20827551 (Version 1)
Quarter: 2022Q2

REPORT INFORMATION
  Report Type: Spontaneous
  Country: US (occurrence: None)
  Receive Date: 20220513
  Receipt Date: 20220513
  Transmission Date: 20220721
  Serious: No
  Sender: FDA-Public Use
  Company Number: None

PATIENT
  Sex: Male

DRUGS (1)
  1. TETRABENAZINE [Suspect]
     Active Substance: TETRABENAZINE
     Indication: Akathisia
     Dosage: 25 MG THYREE TIMES DAILY ORAL?
     Route: 048
     Dates: start: 20220413

REACTIONS (2)
  - Drug ineffective [None]
  - Therapy cessation [None]
